FAERS Safety Report 9438519 (Version 4)
Quarter: 2014Q3

REPORT INFORMATION
  Report Type: Spontaneous
  Country: US (occurrence: US)
  Receive Date: 20130802
  Receipt Date: 20140717
  Transmission Date: 20150326
  Serious: Yes (Hospitalization, Other)
  Sender: FDA-Public Use
  Company Number: US-009507513-1308USA000223

PATIENT
  Sex: Female
  Weight: 77.98 kg

DRUGS (1)
  1. NUVARING [Suspect]
     Active Substance: ETHINYL ESTRADIOL\ETONOGESTREL
     Indication: CONTRACEPTION
     Dosage: 0.12-0.15 MG/24HR,PLACE RING IN FOR 3 WKS/OUT FOR 1 WK
     Route: 067

REACTIONS (11)
  - Ovarian cyst [Unknown]
  - Thrombosis [Unknown]
  - Pulmonary embolism [Unknown]
  - Vaginal discharge [Unknown]
  - Pelvic adhesions [Unknown]
  - Endometriosis [Unknown]
  - Renal failure acute [Unknown]
  - Ovarian cystectomy [Unknown]
  - Chlamydial infection [Unknown]
  - Tubo-ovarian abscess [Unknown]
  - Thrombosis [Unknown]

NARRATIVE: CASE EVENT DATE: 20090821
